FAERS Safety Report 5395485-0 (Version None)
Quarter: 2007Q3

REPORT INFORMATION
  Report Type: 
  Country: None (occurrence: None)
  Receive Date: 20070724
  Receipt Date: 20070531
  Transmission Date: 20080115
  Serious: Yes (Life-Threatening, Other)
  Sender: FDA-Public Use
  Company Number: US-PURDUE-USA_2007_0028404

PATIENT
  Sex: Male

DRUGS (1)
  1. OXYCONTIN [Suspect]
     Indication: BACK PAIN

REACTIONS (5)
  - BLOODY DISCHARGE [None]
  - DRUG DEPENDENCE [None]
  - HYPERTHERMIA [None]
  - MALAISE [None]
  - PNEUMONIA [None]
